FAERS Safety Report 6098179-1 (Version None)
Quarter: 2009Q1

REPORT INFORMATION
  Report Type: 
  Country: None (occurrence: None)
  Receive Date: 20090227
  Receipt Date: 20090225
  Transmission Date: 20090719
  Serious: Yes (Death, Hospitalization)
  Sender: FDA-Public Use
  Company Number: PHHO2007MX07461

PATIENT
  Sex: Female

DRUGS (6)
  1. DIOVAN HCT [Suspect]
     Indication: HYPERTENSION
     Dosage: 160/25/DAY
     Route: 048
     Dates: start: 20070101, end: 20070401
  2. DIOVAN HCT [Suspect]
     Dosage: UNK
  3. PRIMPERAN [Concomitant]
     Dosage: 3 TABLETS PER DAY
  4. SIMVASTATIN [Concomitant]
     Dosage: 1 TABLET PER DAY
  5. FUROSEMIDE [Concomitant]
     Indication: URINARY TRACT INFECTION
     Dosage: 6 TABLETS PER DAY
  6. GLIBENCLAMIDE [Concomitant]
     Indication: DIABETES MELLITUS
     Dosage: 3 TABLETS PER DAY

REACTIONS (3)
  - GASTROINTESTINAL DISORDER THERAPY [None]
  - GASTROINTESTINAL MOTILITY DISORDER [None]
  - RENAL DISORDER [None]
